FAERS Safety Report 7633956-4 (Version None)
Quarter: 2011Q3

REPORT INFORMATION
  Report Type: 
  Country: None (occurrence: None)
  Receive Date: 20110725
  Receipt Date: 20110711
  Transmission Date: 20111222
  Serious: Yes (Hospitalization)
  Sender: FDA-Public Use
  Company Number: FR-JNJFOC-20110705309

PATIENT
  Age: 23 Year
  Sex: Male

DRUGS (3)
  1. IBUPROFEN [Suspect]
     Indication: PHARYNGITIS
     Route: 065
  2. AZITHROMYCIN [Suspect]
     Indication: PHARYNGITIS
     Route: 065
  3. ACETAMINOPHEN W/ CODEINE [Suspect]
     Indication: PHARYNGITIS
     Route: 065

REACTIONS (1)
  - PERITONSILLAR ABSCESS [None]
